FAERS Safety Report 21780224 (Version 4)
Quarter: 2023Q2

REPORT INFORMATION
  Report Type: Report from Study
  Country: CA (occurrence: CA)
  Receive Date: 20221227
  Receipt Date: 20230623
  Transmission Date: 20230722
  Serious: Yes (Other)
  Sender: FDA-Public Use
  Company Number: CA-002147023-NVSC2022CA134744

PATIENT
  Age: 57 Year
  Sex: Female

DRUGS (5)
  1. HYRIMOZ [Suspect]
     Active Substance: ADALIMUMAB-ADAZ
     Indication: Crohn^s disease
     Dosage: 40 MG
     Route: 058
     Dates: start: 20220608
  2. HYRIMOZ [Suspect]
     Active Substance: ADALIMUMAB-ADAZ
     Dosage: 80 MG
     Route: 058
  3. HYRIMOZ [Suspect]
     Active Substance: ADALIMUMAB-ADAZ
     Dosage: 40 MG
     Route: 058
     Dates: start: 20221207
  4. PENTASA [Concomitant]
     Active Substance: MESALAMINE
     Indication: Product used for unknown indication
     Dosage: UNK (FOR 1 YEAR)
     Route: 065
  5. PREDNISONE [Concomitant]
     Active Substance: PREDNISONE
     Indication: Product used for unknown indication
     Dosage: UNK (TAPER)
     Route: 065

REACTIONS (16)
  - Haemorrhage [Unknown]
  - Abdominal discomfort [Not Recovered/Not Resolved]
  - Skin discolouration [Unknown]
  - Feeling hot [Unknown]
  - Joint swelling [Recovered/Resolved]
  - Dyspepsia [Not Recovered/Not Resolved]
  - Constipation [Unknown]
  - Anaemia [Unknown]
  - Oedema [Not Recovered/Not Resolved]
  - Erythema [Unknown]
  - Headache [Unknown]
  - Injection site erythema [Unknown]
  - Injection site swelling [Not Recovered/Not Resolved]
  - Injection site pain [Unknown]
  - Injection site pruritus [Recovering/Resolving]
  - Injection site urticaria [Recovering/Resolving]
